FAERS Safety Report 12475047 (Version 3)
Quarter: 2016Q3

REPORT INFORMATION
  Report Type: Report from Study
  Country: US (occurrence: US)
  Receive Date: 20160617
  Receipt Date: 20160830
  Transmission Date: 20161109
  Serious: Yes (Hospitalization, Other)
  Sender: FDA-Public Use
  Company Number: US-GILEAD-2016-0216594

PATIENT
  Age: 69 Year
  Sex: Female
  Weight: 82.54 kg

DRUGS (2)
  1. AMBRISENTAN [Suspect]
     Active Substance: AMBRISENTAN
     Indication: CONNECTIVE TISSUE DISORDER
  2. AMBRISENTAN [Suspect]
     Active Substance: AMBRISENTAN
     Indication: PULMONARY HYPERTENSION
     Dosage: 10 MG, QD
     Route: 065
     Dates: start: 20110203

REACTIONS (5)
  - Cellulitis [Unknown]
  - Pneumonia [Unknown]
  - Unevaluable event [Unknown]
  - Staphylococcal infection [Unknown]
  - Gastrointestinal disorder [Unknown]
